FAERS Safety Report 9354343 (Version 1)
Quarter: 2013Q2

REPORT INFORMATION
  Report Type: Spontaneous
  Country: US (occurrence: US)
  Receive Date: 20130618
  Receipt Date: 20130618
  Transmission Date: 20140414
  Serious: Yes (Other)
  Sender: FDA-Public Use
  Company Number: US-BRISTOL-MYERS SQUIBB COMPANY-19010271

PATIENT
  Age: 67 Year
  Sex: Female
  Weight: 72.56 kg

DRUGS (7)
  1. SPRYCEL [Suspect]
     Indication: ACUTE LYMPHOCYTIC LEUKAEMIA
     Dosage: STRENGTH 70MG:ABT 2YRS
     Route: 048
  2. PREDNISONE [Concomitant]
  3. MAGNESIUM [Concomitant]
  4. POTASSIUM [Concomitant]
  5. VITAMIN B12 [Concomitant]
  6. ACYCLOVIR [Concomitant]
  7. VITAMIN D [Concomitant]

REACTIONS (2)
  - Crohn^s disease [Unknown]
  - Anaemia [Unknown]
